FAERS Safety Report 22055527 (Version 1)
Quarter: 2023Q1

REPORT INFORMATION
  Report Type: Spontaneous
  Country: None (occurrence: FR)
  Receive Date: 20230302
  Receipt Date: 20230302
  Transmission Date: 20230418
  Serious: Yes (Hospitalization, Other)
  Sender: FDA-Public Use
  Company Number: FR-B.Braun Medical Inc.-2138641

PATIENT
  Age: 39 Year
  Sex: Female

DRUGS (4)
  1. ACETAMINOPHEN [Suspect]
     Active Substance: ACETAMINOPHEN
     Indication: Prophylaxis
  2. MORPHINE [Concomitant]
     Active Substance: MORPHINE
  3. KETOPROFEN [Concomitant]
     Active Substance: KETOPROFEN
  4. SUFENTANIL [Concomitant]
     Active Substance: SUFENTANIL

REACTIONS (3)
  - Intestinal pseudo-obstruction [Unknown]
  - Hyperthermia [Unknown]
  - Pain [Unknown]
